FAERS Safety Report 13702096 (Version 1)
Quarter: 2017Q2

REPORT INFORMATION
  Report Type: Spontaneous
  Country: US (occurrence: US)
  Receive Date: 20170629
  Receipt Date: 20170629
  Transmission Date: 20170830
  Serious: No
  Sender: FDA-Public Use
  Company Number: US-JNJFOC-20170209611

PATIENT
  Sex: Male

DRUGS (2)
  1. SULFACETAMIDE. [Concomitant]
     Active Substance: SULFACETAMIDE
     Route: 065
  2. KETOCONAZOLE. [Suspect]
     Active Substance: KETOCONAZOLE
     Indication: PRURITUS
     Route: 061

REACTIONS (1)
  - Alopecia [Unknown]
